FAERS Safety Report 7454591-7 (Version None)
Quarter: 2011Q2

REPORT INFORMATION
  Report Type: 
  Country: None (occurrence: None)
  Receive Date: 20110503
  Receipt Date: 20101007
  Transmission Date: 20111010
  Serious: Yes (Hospitalization)
  Sender: FDA-Public Use
  Company Number: US-BAYER-201023553NA

PATIENT
  Age: 28 Year
  Sex: Female
  Weight: 61 kg

DRUGS (8)
  1. YAZ [Suspect]
     Indication: CONTRACEPTION
  2. CIPROFLOXACIN [Concomitant]
  3. IBUPROFEN [Concomitant]
  4. TRAMADOL [Concomitant]
  5. PHENERGAN HCL [Concomitant]
  6. YAZ [Suspect]
     Indication: DYSMENORRHOEA
     Dosage: UNK UNK, QD
     Route: 048
     Dates: start: 20070731, end: 20080511
  7. HYDROCODONE BITARTRATE [Concomitant]
  8. YAZ [Suspect]
     Indication: MENORRHAGIA
     Dosage: UNK
     Dates: start: 20080206, end: 20080414

REACTIONS (3)
  - PULMONARY EMBOLISM [None]
  - DYSPNOEA [None]
  - CHEST PAIN [None]
